FAERS Safety Report 8140577 (Version 3)
Quarter: 2012Q4

REPORT INFORMATION
  Report Type: 
  Country: US (occurrence: US)
  Receive Date: 20110916
  Receipt Date: 20120905
  Transmission Date: 20130627
  Serious: Yes (Hospitalization)
  Sender: FDA-Public Use
  Company Number: US-BAYER-2011-084598

PATIENT
  Age: 46 Year
  Sex: Female
  Weight: 77.1 kg

DRUGS (13)
  1. YAZ [Suspect]
     Dosage: UNK
     Dates: start: 200309, end: 200310
  2. YASMIN [Suspect]
  3. ZITHROMAX [Concomitant]
     Dosage: 250 mg, UNK
     Dates: start: 20031007
  4. BENZONATATE [Concomitant]
     Dosage: 200 mg, UNK
     Dates: start: 20031013
  5. HYDRON KGS [Concomitant]
     Dosage: UNK
     Dates: start: 20031017
  6. PREDNISONE [Concomitant]
     Dosage: 20 mg, UNK
     Dates: start: 20031017
  7. ACETAMINOPHEN W/OXYCODONE [Concomitant]
     Dosage: UNK
     Dates: start: 20031028
  8. LEVAQUIN [Concomitant]
     Dosage: 500 mg, UNK
     Dates: start: 20031028
  9. TRAMADOL HCL CF [Concomitant]
     Dosage: 50 mg, UNK
     Dates: start: 20031030
  10. PROMETHAZINE [Concomitant]
     Dosage: 25 mg, UNK
     Dates: start: 20031030
  11. PROTUSS [Concomitant]
     Indication: BRONCHITIS
     Dosage: UNK
     Dates: start: 20031017
  12. BIAXIN [Concomitant]
  13. MS CONTIN [Concomitant]
     Indication: PAIN

REACTIONS (7)
  - Pulmonary embolism [None]
  - Deep vein thrombosis [Recovered/Resolved]
  - Injury [Recovered/Resolved]
  - Pain [Recovered/Resolved]
  - General physical health deterioration [None]
  - Emotional distress [None]
  - Thrombosis [None]
